FAERS Safety Report 10571015 (Version 4)
Quarter: 2015Q1

REPORT INFORMATION
  Report Type: Report from Study
  Country: US (occurrence: US)
  Receive Date: 20141107
  Receipt Date: 20150121
  Transmission Date: 20150720
  Serious: Yes (Hospitalization)
  Sender: FDA-Public Use
  Company Number: US-ACTELION-A-US2014-106418

PATIENT
  Age: 39 Year
  Sex: Female

DRUGS (34)
  1. TRACLEER [Suspect]
     Active Substance: BOSENTAN\BOSENTAN MONOHYDRATE
     Indication: PULMONARY ARTERIAL HYPERTENSION
     Dosage: 125 MG, BID
     Route: 048
     Dates: start: 2010
  2. PROTONIX [Concomitant]
     Active Substance: PANTOPRAZOLE SODIUM
     Dosage: 40 MG, BID
  3. ATARAX [Concomitant]
     Active Substance: HYDROXYZINE\HYDROXYZINE HYDROCHLORIDE
     Dosage: 25 MG, Q6HRS PRN
  4. DUONEB [Concomitant]
     Active Substance: ALBUTEROL SULFATE\IPRATROPIUM BROMIDE
     Dosage: UNK, Q6HRS PRN
  5. XARELTO [Concomitant]
     Active Substance: RIVAROXABAN
  6. SILDENAFIL. [Concomitant]
     Active Substance: SILDENAFIL
     Dosage: 40 MG, TID
  7. ZOLOFT [Concomitant]
     Active Substance: SERTRALINE HYDROCHLORIDE
     Dosage: 150 MG, QD
  8. TOPAMAX [Concomitant]
     Active Substance: TOPIRAMATE
     Dosage: 100 MG, BID
     Dates: start: 201411
  9. TEMOVATE [Concomitant]
     Active Substance: CLOBETASOL PROPIONATE
  10. CETAPHIL [Concomitant]
     Active Substance: AVOBENZONE\OCTOCRYLENE\TRICLOSAN
     Dosage: UNK, BID
  11. TRACLEER [Suspect]
     Active Substance: BOSENTAN\BOSENTAN MONOHYDRATE
     Dosage: 62.5 MG, BID
     Route: 048
     Dates: start: 2010, end: 2010
  12. TUMS [Suspect]
     Active Substance: CALCIUM CARBONATE
     Indication: PRODUCT USED FOR UNKNOWN INDICATION
     Dosage: 800 MG, 5 TIMES A DAY
     Route: 065
  13. POTASSIUM [Concomitant]
     Active Substance: POTASSIUM
     Dosage: 80 MEQ, BID
     Dates: start: 20140808
  14. LASIX [Concomitant]
     Active Substance: FUROSEMIDE
     Dosage: 80 MG, TID
  15. COLCRYS [Concomitant]
     Active Substance: COLCHICINE
     Dosage: 0.6 MG, QD
     Dates: start: 2008
  16. FIORICET WITH CODEINE [Concomitant]
     Active Substance: ACETAMINOPHEN\BUTALBITAL\CAFFEINE\CODEINE PHOSPHATE
     Dosage: 2 CAPSULES, Q6HRS PRN
  17. PROVENTIL [Concomitant]
     Active Substance: ALBUTEROL
     Dosage: 2 PUFF, Q6HRS PRN
  18. SPIRONOLACTONE. [Concomitant]
     Active Substance: SPIRONOLACTONE
     Dosage: 100 MG, BID
     Dates: start: 2013
  19. ZOFRAN [Concomitant]
     Active Substance: ONDANSETRON HYDROCHLORIDE
     Dosage: 4 MG, QPM
  20. LIDEX [Concomitant]
     Active Substance: FLUOCINONIDE
     Dosage: UNK, BID
  21. COREG [Concomitant]
     Active Substance: CARVEDILOL
     Dosage: 6.25 MG, BID
  22. NEURONTIN [Concomitant]
     Active Substance: GABAPENTIN
     Dosage: 900 MG, QPM
  23. NEURONTIN [Concomitant]
     Active Substance: GABAPENTIN
     Dosage: 600 MG, BID
  24. SINEQUAN [Concomitant]
     Active Substance: DOXEPIN HYDROCHLORIDE
     Dosage: 75 MG, QPM
  25. DESONIDE. [Concomitant]
     Active Substance: DESONIDE
     Dosage: UNK, BID
  26. REMODULIN [Suspect]
     Active Substance: TREPROSTINIL
     Indication: PRODUCT USED FOR UNKNOWN INDICATION
     Dosage: 11 MG, CONTINUOUS
     Route: 042
     Dates: start: 20140808, end: 20141129
  27. GABAPENTIN. [Concomitant]
     Active Substance: GABAPENTIN
     Dosage: 600 MG, BID
     Dates: start: 201405
  28. ALLOPURINOL. [Concomitant]
     Active Substance: ALLOPURINOL
     Dosage: 300 MG, QD
     Dates: start: 2008
  29. ULTRAM [Concomitant]
     Active Substance: TRAMADOL HYDROCHLORIDE
     Dosage: 50 MG, BID PRN
  30. FERROUS SULFATE [Concomitant]
     Active Substance: FERROUS SULFATE\FERROUS SULFATE, DRIED
     Dosage: 325 MG, QD
  31. BACID [Concomitant]
     Active Substance: LACTOBACILLUS ACIDOPHILUS
  32. TREPROSTINIL [Suspect]
     Active Substance: TREPROSTINIL
     Indication: PRODUCT USED FOR UNKNOWN INDICATION
     Dosage: 0.25 MG, TID
     Route: 048
     Dates: start: 20141129
  33. FLOLAN [Concomitant]
     Active Substance: EPOPROSTENOL SODIUM
  34. NORCO [Concomitant]
     Active Substance: ACETAMINOPHEN\HYDROCODONE BITARTRATE
     Dosage: 5/325 MG, Q6HRS PRN

REACTIONS (20)
  - Vomiting [Unknown]
  - Anorectal discomfort [Unknown]
  - Hypercalcaemia [Unknown]
  - Acute kidney injury [Unknown]
  - Device related sepsis [Recovered/Resolved]
  - Pulmonary arterial hypertension [Unknown]
  - Skin exfoliation [Unknown]
  - Skin disorder [Unknown]
  - Migraine [Not Recovered/Not Resolved]
  - Catheter site infection [Recovering/Resolving]
  - Erythema [Unknown]
  - Skin irritation [Unknown]
  - Gastrointestinal disorder [Unknown]
  - Hypokalaemia [Unknown]
  - Staphylococcal infection [Recovered/Resolved]
  - Pain [Not Recovered/Not Resolved]
  - Nausea [Unknown]
  - Kidney infection [Recovering/Resolving]
  - Rash pruritic [Unknown]
  - Dry skin [Unknown]

NARRATIVE: CASE EVENT DATE: 20141009
